FAERS Safety Report 19390278 (Version 1)
Quarter: 2021Q2

REPORT INFORMATION
  Report Type: Report from Study
  Country: US (occurrence: US)
  Receive Date: 20210608
  Receipt Date: 20210608
  Transmission Date: 20210717
  Serious: Yes (Other)
  Sender: FDA-Public Use
  Company Number: NVSC2021US056795

PATIENT
  Age: 3 Year
  Sex: Male

DRUGS (3)
  1. CYCLOPHOSPHAMIDE. [Concomitant]
     Active Substance: CYCLOPHOSPHAMIDE
     Indication: CHEMOTHERAPY
     Dosage: UNK
     Route: 065
  2. FLUDARABINE [Concomitant]
     Active Substance: FLUDARABINE PHOSPHATE
     Indication: CHEMOTHERAPY
     Dosage: UNK
     Route: 065
  3. KYMRIAH [Suspect]
     Active Substance: TISAGENLECLEUCEL
     Indication: B-CELL TYPE ACUTE LEUKAEMIA
     Dosage: UNK, ONCE/SINGLE (3.1 X10E6)
     Route: 041
     Dates: start: 20200331

REACTIONS (16)
  - Cytopenia [Unknown]
  - Hypogammaglobulinaemia [Unknown]
  - Restlessness [Unknown]
  - Neutrophil count decreased [Unknown]
  - Pyrexia [Unknown]
  - Neurotoxicity [Recovered/Resolved]
  - Cytokine release syndrome [Recovered/Resolved]
  - Acute lymphocytic leukaemia recurrent [Unknown]
  - Thrombocytopenia [Unknown]
  - White blood cell count decreased [Unknown]
  - Irritability [Unknown]
  - Haematocrit decreased [Unknown]
  - Immune effector cell-associated neurotoxicity syndrome [Unknown]
  - B-cell aplasia [Not Recovered/Not Resolved]
  - Haemoglobin decreased [Unknown]
  - Lymphocyte count decreased [Unknown]
